FAERS Safety Report 23370625 (Version 2)
Quarter: 2024Q1

REPORT INFORMATION
  Report Type: Spontaneous
  Country: US (occurrence: US)
  Receive Date: 20240105
  Receipt Date: 20240209
  Transmission Date: 20240409
  Serious: No
  Sender: FDA-Public Use
  Company Number: US-SA-SAC20240101000754

PATIENT
  Sex: Female
  Weight: 81.6 kg

DRUGS (23)
  1. DUPIXENT [Suspect]
     Active Substance: DUPILUMAB
     Indication: Asthma
     Dosage: 300 MG, QOW
     Route: 058
  2. AMLODIPINE BESYLATE [Concomitant]
     Active Substance: AMLODIPINE BESYLATE
     Dosage: UNK
  3. CYCLOBENZAPRINE HYDROCHLORIDE [Concomitant]
     Active Substance: CYCLOBENZAPRINE HYDROCHLORIDE
  4. CYMBALTA [Concomitant]
     Active Substance: DULOXETINE HYDROCHLORIDE
  5. CLONAZEPAM [Concomitant]
     Active Substance: CLONAZEPAM
  6. PROMETHAZINE HYDROCHLORIDE [Concomitant]
     Active Substance: PROMETHAZINE HYDROCHLORIDE
  7. XIIDRA [Concomitant]
     Active Substance: LIFITEGRAST
     Dosage: UNK
  8. MUPIROCIN [Concomitant]
     Active Substance: MUPIROCIN
     Dosage: UNK
  9. METROGEL [Concomitant]
     Active Substance: METRONIDAZOLE
  10. TRELEGY ELLIPTA [Concomitant]
     Active Substance: FLUTICASONE FUROATE\UMECLIDINIUM BROMIDE\VILANTEROL TRIFENATATE
  11. TRAMADOL HCL [Concomitant]
     Active Substance: TRAMADOL HYDROCHLORIDE
  12. DARIFENACIN [Concomitant]
     Active Substance: DARIFENACIN
     Dosage: 15 MG, QD
  13. EPIPEN [Concomitant]
     Active Substance: EPINEPHRINE
     Dosage: AUTO-INJECTOR
  14. ZETIA [Concomitant]
     Active Substance: EZETIMIBE
  15. LEVOTHYROXINE SODIUM [Concomitant]
     Active Substance: LEVOTHYROXINE SODIUM
  16. SUMATRIPTAN [Concomitant]
     Active Substance: SUMATRIPTAN
  17. LEVOCETIRIZINE DIHYDROCHLORIDE [Concomitant]
     Active Substance: LEVOCETIRIZINE DIHYDROCHLORIDE
  18. VENTOLIN HFA [Concomitant]
     Active Substance: ALBUTEROL SULFATE
     Dosage: HFA AER AD
  19. SINGULAIR [Concomitant]
     Active Substance: MONTELUKAST SODIUM
  20. SINGULAIR [Concomitant]
     Active Substance: MONTELUKAST SODIUM
  21. FLONASE ALLERGY RELIEF [Concomitant]
     Active Substance: FLUTICASONE PROPIONATE
     Dosage: SPRAY SUS
  22. METFORMIN HYDROCHLORIDE [Concomitant]
     Active Substance: METFORMIN HYDROCHLORIDE
     Dosage: ER 24
  23. ACETAMINOPHEN\HYDROCODONE [Concomitant]
     Active Substance: ACETAMINOPHEN\HYDROCODONE
     Dosage: UNK

REACTIONS (3)
  - Blood pressure increased [Unknown]
  - Fluid retention [Unknown]
  - Weight increased [Unknown]
